FAERS Safety Report 6387912-7 (Version None)
Quarter: 2009Q4

REPORT INFORMATION
  Report Type: 
  Country: None (occurrence: None)
  Receive Date: 20091005
  Receipt Date: 20090923
  Transmission Date: 20100525
  Serious: Yes (Other)
  Sender: FDA-Public Use
  Company Number: US-AVENTIS-200918627US

PATIENT
  Sex: Female

DRUGS (4)
  1. LOVENOX [Suspect]
     Indication: PREGNANCY
     Dates: start: 20080401
  2. FOLGARD [Concomitant]
     Dosage: DOSE: UNK
  3. COLACE [Concomitant]
     Dosage: DOSE: UNK
  4. PRENATAL VITAMINS                  /01549301/ [Concomitant]
     Dosage: DOSE: UNK

REACTIONS (2)
  - ABORTION SPONTANEOUS [None]
  - DRUG EXPOSURE DURING PREGNANCY [None]
